FAERS Safety Report 11564765 (Version 2)
Quarter: 2015Q4

REPORT INFORMATION
  Report Type: Report from Study
  Country: US (occurrence: US)
  Receive Date: 20150928
  Receipt Date: 20151123
  Transmission Date: 20160304
  Serious: Yes (Hospitalization, Other)
  Sender: FDA-Public Use
  Company Number: US-ABBVIE-15P-163-1471135-00

PATIENT
  Age: 34 Year
  Sex: Female
  Weight: 60.5 kg

DRUGS (11)
  1. TENEX [Concomitant]
     Active Substance: GUANFACINE HYDROCHLORIDE
     Indication: PRODUCT USED FOR UNKNOWN INDICATION
  2. VITAMIN D [Concomitant]
     Active Substance: CHOLECALCIFEROL
     Indication: PRODUCT USED FOR UNKNOWN INDICATION
  3. LACTULOSE. [Concomitant]
     Active Substance: LACTULOSE
     Indication: PRODUCT USED FOR UNKNOWN INDICATION
  4. VIEKIRA PAK [Suspect]
     Active Substance: DASABUVIR\OMBITASVIR\PARITAPREVIR\RITONAVIR
     Route: 048
     Dates: start: 20150506
  5. NORVASC [Concomitant]
     Active Substance: AMLODIPINE BESYLATE
     Indication: PRODUCT USED FOR UNKNOWN INDICATION
  6. VIEKIRA PAK [Suspect]
     Active Substance: DASABUVIR\OMBITASVIR\PARITAPREVIR\RITONAVIR
     Indication: HEPATITIS C
     Dosage: 12.5MG/75MG/50MG
     Route: 048
     Dates: start: 20150506
  7. SENSIPAR [Concomitant]
     Active Substance: CINACALCET HYDROCHLORIDE
     Indication: PRODUCT USED FOR UNKNOWN INDICATION
  8. RIBAVIRIN. [Suspect]
     Active Substance: RIBAVIRIN
     Indication: HEPATITIS C
     Route: 048
     Dates: start: 20150506, end: 201506
  9. LISINOPRIL. [Concomitant]
     Active Substance: LISINOPRIL
     Indication: PRODUCT USED FOR UNKNOWN INDICATION
  10. RIBAVIRIN. [Suspect]
     Active Substance: RIBAVIRIN
     Dosage: EVERY MON AND FRIDAY
     Route: 048
     Dates: start: 201506
  11. CARVEDILOL. [Concomitant]
     Active Substance: CARVEDILOL
     Indication: PRODUCT USED FOR UNKNOWN INDICATION

REACTIONS (8)
  - Upper gastrointestinal haemorrhage [Unknown]
  - Pericardial effusion [Unknown]
  - Vomiting [Unknown]
  - Gastric ulcer [Unknown]
  - Diarrhoea [Unknown]
  - Stomach mass [Unknown]
  - Nausea [Unknown]
  - Pyrexia [Unknown]

NARRATIVE: CASE EVENT DATE: 20150527
